FAERS Safety Report 8831943 (Version 1)
Quarter: 2012Q4

REPORT INFORMATION
  Report Type: 
  Country: CZ (occurrence: CZ)
  Receive Date: 20121009
  Receipt Date: 20121009
  Transmission Date: 20130627
  Serious: Yes (Other)
  Sender: FDA-Public Use
  Company Number: CZ-PFIZER INC-2009267056

PATIENT
  Sex: Male

DRUGS (2)
  1. SUNITINIB MALATE [Suspect]
     Indication: RENAL CELL CARCINOMA
     Dosage: UNK
     Dates: start: 200607
  2. SUNITINIB MALATE [Suspect]
     Indication: METASTASES TO LYMPH NODES

REACTIONS (3)
  - Hypothyroidism [Recovering/Resolving]
  - Skin exfoliation [Unknown]
  - Skin fissures [Unknown]
